FAERS Safety Report 8850278 (Version 2)
Quarter: 2013Q1

REPORT INFORMATION
  Report Type: Spontaneous
  Country: US (occurrence: US)
  Receive Date: 20121019
  Receipt Date: 20130114
  Transmission Date: 20140127
  Serious: Yes (Death)
  Sender: FDA-Public Use
  Company Number: US-GILEAD-2012-0063216

PATIENT
  Sex: Female

DRUGS (3)
  1. LETAIRIS [Suspect]
     Indication: PULMONARY ARTERIAL HYPERTENSION
     Dosage: 5 MG, UNK
     Route: 048
     Dates: start: 20120813
  2. LETAIRIS [Suspect]
     Indication: TOXICITY TO VARIOUS AGENTS
  3. LETAIRIS [Suspect]
     Indication: ATRIAL FIBRILLATION

REACTIONS (2)
  - Hypoxia [Fatal]
  - Respiratory failure [Fatal]
